FAERS Safety Report 25235475 (Version 1)
Quarter: 2025Q2

REPORT INFORMATION
  Report Type: Spontaneous
  Country: US (occurrence: US)
  Receive Date: 20250424
  Receipt Date: 20250424
  Transmission Date: 20250716
  Serious: Yes (Disabling, Other)
  Sender: PFIZER
  Company Number: US-PFIZER INC-202500085164

PATIENT
  Age: 63 Year
  Sex: Male

DRUGS (2)
  1. XELJANZ XR [Suspect]
     Active Substance: TOFACITINIB CITRATE
     Indication: Psoriatic arthropathy
     Dosage: 11 MG QD
  2. XELJANZ XR [Suspect]
     Active Substance: TOFACITINIB CITRATE
     Indication: Colitis ulcerative

REACTIONS (3)
  - Neuropathy peripheral [Unknown]
  - Disturbance in attention [Unknown]
  - Pain [Unknown]
